FAERS Safety Report 5033947-6 (Version None)
Quarter: 2006Q2

REPORT INFORMATION
  Report Type: 
  Country: None (occurrence: None)
  Receive Date: 20060623
  Receipt Date: 20060614
  Transmission Date: 20061013
  Serious: Yes (Death)
  Sender: FDA-Public Use
  Company Number: GB-MERCK-0606GBR00047

PATIENT
  Age: 78 Year
  Sex: Female

DRUGS (10)
  1. DECADRON [Suspect]
     Route: 048
  2. DERMATOLOGIC (UNSPECIFIED) [Suspect]
     Route: 065
     Dates: end: 20031008
  3. LACTULOSE [Suspect]
     Route: 048
  4. LANSOPRAZOLE [Suspect]
     Route: 048
  5. ACETAMINOPHEN [Suspect]
     Route: 048
  6. QUININE SULFATE [Suspect]
     Route: 048
  7. ALBUTEROL [Suspect]
     Route: 055
     Dates: end: 20031008
  8. SENNA [Suspect]
     Route: 048
  9. SERETIDE [Suspect]
     Route: 055
  10. SPIRIVA [Suspect]
     Indication: CHRONIC OBSTRUCTIVE PULMONARY DISEASE
     Route: 055
     Dates: end: 20031008

REACTIONS (1)
  - NON-HODGKIN'S LYMPHOMA [None]
